FAERS Safety Report 4492369-7 (Version None)
Quarter: 2004Q3

REPORT INFORMATION
  Report Type: 
  Country: None (occurrence: None)
  Receive Date: 20040921
  Receipt Date: 20030808
  Transmission Date: 20050211
  Serious: Yes (Hospitalization)
  Sender: FDA-Public Use
  Company Number: 163-20785-03080445

PATIENT
  Age: 56 Year
  Sex: Male

DRUGS (16)
  1. THALOMID [Suspect]
     Indication: MULTIPLE MYELOMA
     Dosage: 100 MG, DAILY, ORAL
     Route: 048
     Dates: start: 20020719
  2. AREDIA [Concomitant]
  3. ZOLOFT [Concomitant]
  4. ACYCLOVIR [Concomitant]
  5. CALCIUM             (CALCIUM) [Concomitant]
  6. OXYCONTIN [Concomitant]
  7. NIFEREX                 (POLYSACCHARIDE-IRON COMPLEX) [Concomitant]
  8. ALTACE [Concomitant]
  9. PROCRIT [Concomitant]
  10. FOLATE (FOLATE SODIUM) [Concomitant]
  11. VINCRISTINE (VINCRISTINE0 [Concomitant]
  12. ADRIAMYCIN PFS [Concomitant]
  13. DEXAMETHASONE [Concomitant]
  14. CYCLOPHOSPHAMIDE [Concomitant]
  15. ETOPOSIDE [Concomitant]
  16. CISPLATIN [Concomitant]

REACTIONS (6)
  - DEHYDRATION [None]
  - DIARRHOEA [None]
  - NEPHROLITHIASIS [None]
  - PNEUMONIA [None]
  - PYREXIA [None]
  - VOMITING [None]
